FAERS Safety Report 5783998-9 (Version None)
Quarter: 2008Q2

REPORT INFORMATION
  Report Type: 
  Country: None (occurrence: None)
  Receive Date: 20080605
  Receipt Date: 20080328
  Transmission Date: 20081010
  Serious: No
  Sender: FDA-Public Use
  Company Number: A0717986A

PATIENT
  Age: 61 Year
  Sex: Female

DRUGS (5)
  1. ALLI [Suspect]
     Dates: start: 20080316, end: 20080327
  2. ASCORBIC ACID [Concomitant]
  3. VITAMIN E [Concomitant]
  4. CALCIUM [Concomitant]
  5. B COMPLEX VITAMINS [Concomitant]

REACTIONS (2)
  - ABDOMINAL PAIN UPPER [None]
  - NAUSEA [None]
